FAERS Safety Report 12338196 (Version 2)
Quarter: 2017Q3

REPORT INFORMATION
  Report Type: Report from Study
  Country: CR (occurrence: CR)
  Receive Date: 20160505
  Receipt Date: 20170718
  Transmission Date: 20171127
  Serious: Yes (Hospitalization)
  Sender: FDA-Public Use
  Company Number: PHHY2014CR130535

PATIENT
  Age: 48 Year
  Sex: Female

DRUGS (3)
  1. INTERFERON [Suspect]
     Active Substance: INTERFERON
     Indication: PRODUCT USED FOR UNKNOWN INDICATION
     Route: 065
  2. GILENYA [Suspect]
     Active Substance: FINGOLIMOD HYDROCHLORIDE
     Indication: PRODUCT USED FOR UNKNOWN INDICATION
     Dosage: 0.5 MG, UNK
     Route: 065
  3. CODIOVAN [Concomitant]
     Active Substance: HYDROCHLOROTHIAZIDE\VALSARTAN
     Indication: HYPERTENSION
     Dosage: 160/12.5 MG, Q24H
     Route: 065

REACTIONS (18)
  - Cerebral disorder [Unknown]
  - Pain [Unknown]
  - White blood cell count decreased [Unknown]
  - Oral herpes [Unknown]
  - Oropharyngeal pain [Unknown]
  - Scratch [Unknown]
  - Rash erythematous [Unknown]
  - Crying [Unknown]
  - Contusion [Unknown]
  - Aphonia [Unknown]
  - Skin discolouration [Unknown]
  - Blindness unilateral [Not Recovered/Not Resolved]
  - Immunodeficiency [Unknown]
  - Inferiority complex [Unknown]
  - Scar [Unknown]
  - Anxiety [Unknown]
  - Secondary progressive multiple sclerosis [Unknown]
  - Vision blurred [Not Recovered/Not Resolved]

NARRATIVE: CASE EVENT DATE: 201610
